FAERS Safety Report 9787494 (Version 3)
Quarter: 2014Q2

REPORT INFORMATION
  Report Type: Spontaneous
  Country: US (occurrence: None)
  Receive Date: 20131224
  Receipt Date: 20140619
  Transmission Date: 20141212
  Serious: Yes (Hospitalization)
  Sender: FDA-Public Use
  Company Number: 2013-US-004567

PATIENT
  Age: 67 Year
  Sex: Female
  Weight: 59.9 kg

DRUGS (5)
  1. XYREM [Suspect]
     Indication: NARCOLEPSY
     Dosage: 4.5 G, FIRST DOSE, ORAL
     Route: 048
     Dates: start: 201306
  2. XYREM [Suspect]
     Indication: NARCOLEPSY
     Dosage: 4.5 G, FIRST DOSE, ORAL
     Route: 048
     Dates: start: 201306
  3. NUTRILITE VITAMINS (VITAMINS NOS) [Concomitant]
  4. DOUBLE X VITAMIN (VITAMINS NOS) [Concomitant]
  5. VITAMIN A (RETINOL) [Concomitant]

REACTIONS (1)
  - Metastatic squamous cell carcinoma [None]
